FAERS Safety Report 18282016 (Version 1)
Quarter: 2020Q3

REPORT INFORMATION
  Report Type: Report from Study
  Country: US (occurrence: US)
  Receive Date: 20200918
  Receipt Date: 20200918
  Transmission Date: 20201103
  Serious: Yes (Hospitalization, Other)
  Sender: FDA-Public Use
  Company Number: US-EISAI MEDICAL RESEARCH-EC-2020-078293

PATIENT
  Age: 69 Year
  Sex: Female
  Weight: 106 kg

DRUGS (13)
  1. LENVIMA [Suspect]
     Active Substance: LENVATINIB
     Indication: UTERINE CANCER
     Route: 048
     Dates: start: 20200716, end: 202009
  2. XGEVA [Suspect]
     Active Substance: DENOSUMAB
     Indication: PRODUCT USED FOR UNKNOWN INDICATION
     Dosage: FREQUENCY UNKNOWN. DOSE 120 MG/1.7
     Route: 065
  3. VITAMIN D [Concomitant]
     Active Substance: VITAMIN D NOS
  4. LASIX [Concomitant]
     Active Substance: FUROSEMIDE
  5. ELIQUIS [Concomitant]
     Active Substance: APIXABAN
  6. KEYTRUDA [Concomitant]
     Active Substance: PEMBROLIZUMAB
     Dosage: DOSE 100 MG/4 MLDOSE 100 MG/4 MLDOSE 100 MG/4 MLDOSE 100 MG/4 ML
  7. NORCO [Concomitant]
     Active Substance: ACETAMINOPHEN\HYDROCODONE BITARTRATE
  8. PRILOSEC [Concomitant]
     Active Substance: OMEPRAZOLE MAGNESIUM
  9. HYDROCODONE?ACETAMINOPHEN [Concomitant]
     Active Substance: ACETAMINOPHEN\HYDROCODONE
  10. METOPROLOL. [Concomitant]
     Active Substance: METOPROLOL
  11. ACETAMINOPHEN. [Concomitant]
     Active Substance: ACETAMINOPHEN
  12. DEXAMETHASONE. [Concomitant]
     Active Substance: DEXAMETHASONE
  13. CALCIUM + D3 [Concomitant]
     Active Substance: CALCIUM\CHOLECALCIFEROL

REACTIONS (15)
  - Blood pressure increased [Recovering/Resolving]
  - Infection [Unknown]
  - Restlessness [Unknown]
  - Chest pain [Unknown]
  - Oxygen saturation decreased [Unknown]
  - Diarrhoea [Recovering/Resolving]
  - Gallbladder rupture [Unknown]
  - Dyspnoea [Unknown]
  - Ventricular fibrillation [Recovering/Resolving]
  - Blood pressure diastolic increased [Unknown]
  - Heart rate increased [Unknown]
  - Product blister packaging issue [Unknown]
  - Bone pain [Unknown]
  - Depression [Recovering/Resolving]
  - Pain in extremity [Unknown]

NARRATIVE: CASE EVENT DATE: 2020
